FAERS Safety Report 16527991 (Version 2)
Quarter: 2019Q3

REPORT INFORMATION
  Report Type: Spontaneous
  Country: JP (occurrence: JP)
  Receive Date: 20190704
  Receipt Date: 20190821
  Transmission Date: 20191004
  Serious: Yes (Hospitalization, Other)
  Sender: FDA-Public Use
  Company Number: JP-BRISTOL-MYERS SQUIBB COMPANY-BMS-2019-025229

PATIENT
  Age: 57 Year
  Sex: Male
  Weight: 64 kg

DRUGS (3)
  1. METHYLPREDNISOLONE SODIUM SUCCINATE. [Suspect]
     Active Substance: METHYLPREDNISOLONE SODIUM SUCCINATE
     Indication: HEPATIC FUNCTION ABNORMAL
     Dosage: 125 MILLIGRAM, QD
     Route: 041
     Dates: start: 20190308, end: 20190312
  2. PREDONINE [Suspect]
     Active Substance: PREDNISOLONE
     Indication: HEPATIC FUNCTION ABNORMAL
     Dosage: 35 MILLIGRAM, QD
     Route: 048
     Dates: start: 20190313, end: 20190320
  3. OPDIVO [Suspect]
     Active Substance: NIVOLUMAB
     Indication: METASTATIC RENAL CELL CARCINOMA
     Dosage: 240 MILLIGRAM, Q2WK
     Route: 041
     Dates: start: 20180718, end: 20190220

REACTIONS (7)
  - Myositis [Recovered/Resolved]
  - Interstitial lung disease [Unknown]
  - Diabetes mellitus [Unknown]
  - Rhabdomyolysis [Unknown]
  - Metastases to pancreas [Unknown]
  - Hepatic function abnormal [Recovering/Resolving]
  - Haemoptysis [Unknown]

NARRATIVE: CASE EVENT DATE: 20190206
